FAERS Safety Report 25440098 (Version 1)
Quarter: 2025Q2

REPORT INFORMATION
  Report Type: Spontaneous
  Country: CN (occurrence: CN)
  Receive Date: 20250616
  Receipt Date: 20250616
  Transmission Date: 20250717
  Serious: Yes (Other)
  Sender: PFIZER
  Company Number: CN-PFIZER INC-202500120380

PATIENT
  Age: 47 Year
  Sex: Female
  Weight: 59.2 kg

DRUGS (7)
  1. VORICONAZOLE [Suspect]
     Active Substance: VORICONAZOLE
     Indication: Fungal infection
     Dates: start: 20250530
  2. VORICONAZOLE [Suspect]
     Active Substance: VORICONAZOLE
     Indication: Anti-infective therapy
     Dosage: 0.2 G, Q12H
     Dates: start: 20250531
  3. MEROPENEM [Suspect]
     Active Substance: MEROPENEM
     Indication: Anti-infective therapy
     Dates: start: 20250521
  4. MEROPENEM [Suspect]
     Active Substance: MEROPENEM
     Dosage: 1 G, Q8H
     Dates: start: 20250531
  5. MEROPENEM [Suspect]
     Active Substance: MEROPENEM
     Dosage: 2 G, Q8H
     Dates: start: 20250604
  6. VANCOMYCIN [Suspect]
     Active Substance: VANCOMYCIN
     Indication: Anti-infective therapy
     Dosage: 1 G, Q12H
     Dates: start: 20250531
  7. CASPOFUNGIN [Suspect]
     Active Substance: CASPOFUNGIN
     Indication: Anti-infective therapy
     Dates: start: 20250531

REACTIONS (12)
  - Pneumonia [Unknown]
  - White blood cell count decreased [Recovering/Resolving]
  - Haemoglobin decreased [Recovering/Resolving]
  - Platelet count decreased [Not Recovered/Not Resolved]
  - Neutrophil count decreased [Recovering/Resolving]
  - Pyrexia [Recovered/Resolved]
  - Temperature intolerance [Unknown]
  - Headache [Unknown]
  - Cough [Unknown]
  - Haemoptysis [Unknown]
  - Dry throat [Unknown]
  - Throat irritation [Unknown]

NARRATIVE: CASE EVENT DATE: 20250529
